FAERS Safety Report 7197148-8 (Version None)
Quarter: 2010Q4

REPORT INFORMATION
  Report Type: 
  Country: None (occurrence: None)
  Receive Date: 20101224
  Receipt Date: 20101221
  Transmission Date: 20110411
  Serious: Yes (Death)
  Sender: FDA-Public Use
  Company Number: PHHY2010IN87155

PATIENT
  Age: 89 Year
  Sex: Female

DRUGS (1)
  1. FEMARA [Suspect]
     Dosage: 1 DF, ONE PER DAY
     Route: 048

REACTIONS (1)
  - DEATH [None]
